FAERS Safety Report 6976080-6 (Version None)
Quarter: 2010Q3

REPORT INFORMATION
  Report Type: 
  Country: None (occurrence: None)
  Receive Date: 20100910
  Receipt Date: 20100831
  Transmission Date: 20110219
  Serious: Yes (Death)
  Sender: FDA-Public Use
  Company Number: GB-JNJFOC-20100900558

PATIENT
  Age: 73 Year
  Sex: Female
  Weight: 85 kg

DRUGS (2)
  1. INFLIXIMAB, RECOMBINANT [Suspect]
     Indication: RHEUMATOID ARTHRITIS
     Route: 042
  2. INFLIXIMAB, RECOMBINANT [Suspect]
     Route: 042

REACTIONS (4)
  - ASTHMA [None]
  - BRONCHOPNEUMONIA [None]
  - MYOCARDIAL ISCHAEMIA [None]
  - SEPSIS [None]
